FAERS Safety Report 6611985-7 (Version None)
Quarter: 2010Q1

REPORT INFORMATION
  Report Type: 
  Country: None (occurrence: None)
  Receive Date: 20100302
  Receipt Date: 20100302
  Transmission Date: 20100710
  Serious: Yes (Disabling)
  Sender: FDA-Public Use
  Company Number: None

PATIENT
  Sex: Female
  Weight: 66.6788 kg

DRUGS (2)
  1. ANTIHISTABS [Suspect]
     Indication: ALLERGY PROPHYLAXIS
     Dosage: 1 TABLET 1 TIME DAILY PO
     Route: 048
     Dates: start: 20000101, end: 20100227
  2. ANTIHISTABS [Suspect]
     Indication: INFECTION PROPHYLAXIS
     Dosage: 1 TABLET 1 TIME DAILY PO
     Route: 048
     Dates: start: 20000101, end: 20100227

REACTIONS (2)
  - DRUG RESISTANCE [None]
  - PRURITUS GENERALISED [None]
